FAERS Safety Report 6658920-3 (Version None)
Quarter: 2010Q1

REPORT INFORMATION
  Report Type: 
  Country: None (occurrence: None)
  Receive Date: 20100330
  Receipt Date: 20100311
  Transmission Date: 20100710
  Serious: No
  Sender: FDA-Public Use
  Company Number: US-BIOGENIDEC-2010BI008651

PATIENT
  Age: 29 Year
  Sex: Female

DRUGS (1)
  1. TYSABRI [Suspect]
     Indication: MULTIPLE SCLEROSIS
     Route: 042
     Dates: start: 20091215

REACTIONS (5)
  - DEPRESSED MOOD [None]
  - GLYCOSYLATED HAEMOGLOBIN INCREASED [None]
  - MOBILITY DECREASED [None]
  - VITAMIN B12 DEFICIENCY [None]
  - WEIGHT INCREASED [None]
